FAERS Safety Report 7934372-8 (Version None)
Quarter: 2011Q4

REPORT INFORMATION
  Report Type: 
  Country: None (occurrence: None)
  Receive Date: 20111122
  Receipt Date: 20110307
  Transmission Date: 20120403
  Serious: Yes (Hospitalization)
  Sender: FDA-Public Use
  Company Number: US-GLAXOSMITHKLINE-A0917685A

PATIENT
  Age: 64 Year
  Sex: Female

DRUGS (1)
  1. ROSIGLITAZONE MALEATE [Suspect]
     Indication: DIABETES MELLITUS
     Dosage: 10MG PER DAY
     Route: 048

REACTIONS (3)
  - CARDIOVASCULAR DISORDER [None]
  - HYPOAESTHESIA ORAL [None]
  - HEMIPARESIS [None]
